FAERS Safety Report 5400101-5 (Version None)
Quarter: 2007Q3

REPORT INFORMATION
  Report Type: 
  Country: None (occurrence: None)
  Receive Date: 20070725
  Receipt Date: 20070710
  Transmission Date: 20080115
  Serious: Yes (Death)
  Sender: FDA-Public Use
  Company Number: 2007001250

PATIENT
  Age: 20 Year
  Sex: Male

DRUGS (5)
  1. TARCEVA [Suspect]
     Indication: NON-SMALL CELL LUNG CANCER
     Dosage: 150 MG (QD), ORAL
     Route: 048
     Dates: start: 20061121, end: 20061202
  2. CODEINE SUL TAB [Concomitant]
  3. DEXTROMETHORPHAN HYDROBROMIDE [Concomitant]
  4. TAZOCIN (PIP / TAZO) [Concomitant]
  5. CIPROFLOXACIN [Concomitant]

REACTIONS (1)
  - DYSPNOEA [None]
